FAERS Safety Report 4505773-5 (Version None)
Quarter: 2004Q4

REPORT INFORMATION
  Report Type: 
  Country: None (occurrence: None)
  Receive Date: 20041119
  Receipt Date: 20041111
  Transmission Date: 20050328
  Serious: Yes (Hospitalization)
  Sender: FDA-Public Use
  Company Number: AU-GLAXOSMITHKLINE-B0357282A

PATIENT
  Age: 63 Year
  Sex: Male

DRUGS (3)
  1. AVANDIA [Suspect]
     Dates: start: 20041019
  2. NORVASC [Concomitant]
  3. COVERSYL [Concomitant]

REACTIONS (3)
  - ANGINA PECTORIS [None]
  - CARDIAC FAILURE [None]
  - CHEST PAIN [None]
